FAERS Safety Report 15440510 (Version 1)
Quarter: 2018Q3

REPORT INFORMATION
  Report Type: Report from Study
  Country: BD (occurrence: BD)
  Receive Date: 20180928
  Receipt Date: 20180928
  Transmission Date: 20181010
  Serious: Yes (Death, Other)
  Sender: FDA-Public Use
  Company Number: PHHY2018BD110254

PATIENT
  Age: 47 Year
  Sex: Male
  Weight: 76 kg

DRUGS (1)
  1. ZOMETA [Suspect]
     Active Substance: ZOLEDRONIC ACID
     Indication: PROSTATE CANCER
     Dosage: 4 MG, QD (START DATE: 8 ?9 MONTHS AGO)
     Route: 058

REACTIONS (4)
  - Weight decreased [Unknown]
  - Death [Fatal]
  - Incorrect route of drug administration [Unknown]
  - Inappropriate schedule of drug administration [Unknown]

NARRATIVE: CASE EVENT DATE: 20180922
